FAERS Safety Report 6573219-1 (Version None)
Quarter: 2010Q1

REPORT INFORMATION
  Report Type: 
  Country: None (occurrence: None)
  Receive Date: 20100208
  Receipt Date: 20100127
  Transmission Date: 20100710
  Serious: Yes (Hospitalization)
  Sender: FDA-Public Use
  Company Number: GB-MEDIMMUNE-MEDI-0010202

PATIENT
  Weight: 4.6 kg

DRUGS (2)
  1. SYNAGIS [Suspect]
     Route: 030
     Dates: start: 20091202
  2. OXYGEN [Concomitant]

REACTIONS (2)
  - RESPIRATORY DISORDER [None]
  - RESPIRATORY TRACT INFECTION [None]
